FAERS Safety Report 11830726 (Version 2)
Quarter: 2019Q3

REPORT INFORMATION
  Report Type: Spontaneous
  Country: US (occurrence: US)
  Receive Date: 20151214
  Receipt Date: 20190924
  Transmission Date: 20191004
  Serious: Yes (Hospitalization)
  Sender: FDA-Public Use
  Company Number: US-JNJFOC-20151200388

PATIENT

DRUGS (1)
  1. PARACETAMOL [Suspect]
     Active Substance: ACETAMINOPHEN
     Indication: PRODUCT USED FOR UNKNOWN INDICATION
     Dosage: PARACETAMOL PARENT COMPOUND LEVEL DETECTED AT ADMISSION: 150000 TO 50006.5 MG AND NO PARACETAMOL PAR
     Route: 048

REACTIONS (5)
  - Intentional overdose [Unknown]
  - Accidental overdose [Unknown]
  - Acute hepatic failure [Unknown]
  - Suicide attempt [Unknown]
  - Drug-induced liver injury [Unknown]
